FAERS Safety Report 6429892-1 (Version None)
Quarter: 2009Q4

REPORT INFORMATION
  Report Type: 
  Country: None (occurrence: None)
  Receive Date: 20091106
  Receipt Date: 20091102
  Transmission Date: 20100525
  Serious: Yes (Death)
  Sender: FDA-Public Use
  Company Number: US-JNJFOC-20091101404

PATIENT
  Sex: Male
  Weight: 130.64 kg

DRUGS (3)
  1. FENTANYL-100 [Suspect]
     Indication: DRUG USE FOR UNKNOWN INDICATION
     Route: 062
  2. ACETAMINOPHEN [Concomitant]
     Route: 065
  3. OXYCODONE [Concomitant]
     Route: 065

REACTIONS (1)
  - COMPLETED SUICIDE [None]
